FAERS Safety Report 18275647 (Version 1)
Quarter: 2020Q3

REPORT INFORMATION
  Report Type: Spontaneous
  Country: US (occurrence: US)
  Receive Date: 20200917
  Receipt Date: 20200917
  Transmission Date: 20201103
  Serious: No
  Sender: FDA-Public Use
  Company Number: US-BION-008262

PATIENT
  Age: 55 Year
  Sex: Female

DRUGS (2)
  1. ZYRTEC [Suspect]
     Active Substance: CETIRIZINE HYDROCHLORIDE
     Indication: SEASONAL ALLERGY
     Route: 048
     Dates: end: 20190912
  2. MELATONIN [Concomitant]
     Active Substance: MELATONIN
     Dosage: AT NIGHT

REACTIONS (1)
  - Condition aggravated [Recovering/Resolving]
